FAERS Safety Report 9563817 (Version 1)
Quarter: 2013Q3

REPORT INFORMATION
  Report Type: Spontaneous
  Country: US (occurrence: None)
  Receive Date: 20130926
  Receipt Date: 20130926
  Transmission Date: 20140515
  Serious: Yes (Disabling)
  Sender: FDA-Public Use
  Company Number: None

PATIENT
  Age: 60 Year
  Sex: Female
  Weight: 50.8 kg

DRUGS (1)
  1. SCOPLAINE PATCH 1.5MG [Suspect]
     Indication: PROPHYLAXIS AGAINST MOTION SICKNESS
     Dosage: 1 PATCH EVERY 3 DAYS APPLIED TO A SURFACE USUALLY THE SKIN
     Dates: start: 20130907, end: 20130914

REACTIONS (5)
  - Migraine [None]
  - Malaise [None]
  - Muscle twitching [None]
  - Muscular weakness [None]
  - Dizziness [None]
